FAERS Safety Report 7732794-1 (Version None)
Quarter: 2011Q3

REPORT INFORMATION
  Report Type: 
  Country: None (occurrence: None)
  Receive Date: 20110907
  Receipt Date: 20110823
  Transmission Date: 20111222
  Serious: Yes (Other)
  Sender: FDA-Public Use
  Company Number: US-JNJFOC-20110813037

PATIENT
  Age: 32 Year
  Sex: Male

DRUGS (1)
  1. LISTERINE MOUTHWASH [Suspect]
     Indication: ACCIDENTAL EXPOSURE
     Route: 048

REACTIONS (2)
  - DIARRHOEA [None]
  - ACCIDENTAL EXPOSURE [None]
